FAERS Safety Report 8304307-7 (Version None)
Quarter: 2012Q2

REPORT INFORMATION
  Report Type: 
  Country: None (occurrence: None)
  Receive Date: 20120423
  Receipt Date: 20120423
  Transmission Date: 20120825
  Serious: Yes (Other)
  Sender: FDA-Public Use
  Company Number: None

PATIENT
  Age: 55 Year
  Sex: Male
  Weight: 124.73 kg

DRUGS (1)
  1. CARDIOLITE [Suspect]

REACTIONS (5)
  - HEADACHE [None]
  - DISORIENTATION [None]
  - DEPRESSION [None]
  - INSOMNIA [None]
  - AMNESIA [None]
